FAERS Safety Report 4353703-1 (Version None)
Quarter: 2004Q2

REPORT INFORMATION
  Report Type: 
  Country: None (occurrence: None)
  Receive Date: 20040430
  Receipt Date: 20040420
  Transmission Date: 20050107
  Serious: Yes (Disabling)
  Sender: FDA-Public Use
  Company Number: GB-JNJFOC-20040404252

PATIENT
  Age: 65 Year
  Sex: Female
  Weight: 67 kg

DRUGS (7)
  1. REMICADE [Suspect]
     Indication: RHEUMATOID ARTHRITIS
     Dosage: 3 MG/KG, INTRAVENOUS
     Route: 042
     Dates: start: 20020801
  2. METHOTREXATE [Concomitant]
  3. PREDNISOLONE [Concomitant]
  4. CELECOXIB (CELECOXIB) [Concomitant]
  5. FOLIC ACID [Concomitant]
  6. RISEDRONATE SODIUM (RISEDRONATE SODIUM) [Concomitant]
  7. BENDROFLUAZIDE (BENDROFLUMETHIAZIDE) [Concomitant]

REACTIONS (4)
  - CONDITION AGGRAVATED [None]
  - OSTEOPOROSIS [None]
  - PAIN [None]
  - SPINAL FRACTURE [None]
